FAERS Safety Report 5458678-X (Version None)
Quarter: 2007Q3

REPORT INFORMATION
  Report Type: 
  Country: None (occurrence: None)
  Receive Date: 20070919
  Receipt Date: 20070917
  Transmission Date: 20080115
  Serious: Yes (Death, Other)
  Sender: FDA-Public Use
  Company Number: US-BRISTOL-MYERS SQUIBB COMPANY-13910963

PATIENT
  Age: 36 Year
  Sex: Female

DRUGS (5)
  1. CISPLATIN [Suspect]
     Indication: METASTATIC MALIGNANT MELANOMA
  2. VINBLASTINE SULFATE [Suspect]
     Indication: METASTATIC MALIGNANT MELANOMA
  3. DACARBAZINE [Suspect]
     Indication: METASTATIC MALIGNANT MELANOMA
  4. INTERFERON ALPHA [Suspect]
     Indication: METASTATIC MALIGNANT MELANOMA
  5. PROLEUKIN [Suspect]
     Indication: METASTATIC MALIGNANT MELANOMA

REACTIONS (6)
  - HEPATIC ENCEPHALOPATHY [None]
  - MALIGNANT NEOPLASM PROGRESSION [None]
  - MELANOSIS [None]
  - PANCYTOPENIA [None]
  - RENAL FAILURE [None]
  - TUMOUR LYSIS SYNDROME [None]
